FAERS Safety Report 6412881-0 (Version None)
Quarter: 2009Q4

REPORT INFORMATION
  Report Type: 
  Country: None (occurrence: None)
  Receive Date: 20091023
  Receipt Date: 20091016
  Transmission Date: 20100525
  Serious: Yes (Other)
  Sender: FDA-Public Use
  Company Number: PHMT2007CA01332

PATIENT
  Sex: Male

DRUGS (1)
  1. SANDOSTATIN LAR [Suspect]
     Indication: ACROMEGALY
     Dosage: 30 MG EVERY 4 WEEKS
     Route: 030
     Dates: start: 20060117

REACTIONS (6)
  - BURNING SENSATION [None]
  - CHONDROPATHY [None]
  - HEART RATE INCREASED [None]
  - LOCALISED INFECTION [None]
  - PAIN IN EXTREMITY [None]
  - RASH [None]
